FAERS Safety Report 8093301-X (Version None)
Quarter: 2012Q1

REPORT INFORMATION
  Report Type: 
  Country: None (occurrence: None)
  Receive Date: 20120128
  Receipt Date: 20111013
  Transmission Date: 20120608
  Serious: No
  Sender: FDA-Public Use
  Company Number: US-ABBOTT-11P-163-0841316-00

PATIENT
  Age: 18 Year
  Sex: Male
  Weight: 86.26 kg

DRUGS (8)
  1. TRAMADOL HCL [Concomitant]
     Indication: PRODUCT USED FOR UNKNOWN INDICATION
  2. SINGULAIR [Concomitant]
     Indication: ASTHMA
     Dosage: DAILY
  3. XOPENEX [Concomitant]
     Indication: ASTHMA
     Dosage: MEASURED DOSE AS NEEDED
  4. ALLERGY SHOTS [Concomitant]
     Indication: HYPERSENSITIVITY
  5. HUMIRA [Suspect]
     Indication: ANKYLOSING SPONDYLITIS
     Dates: start: 20110303
  6. ZOPINEX [Concomitant]
     Indication: PRODUCT USED FOR UNKNOWN INDICATION
  7. VOLTAREN [Concomitant]
     Indication: INFLAMMATION
     Dosage: DAILY
  8. ALLEGRA [Concomitant]
     Indication: ASTHMA
     Dosage: DAILY

REACTIONS (8)
  - WRONG TECHNIQUE IN DRUG USAGE PROCESS [None]
  - ARTHRALGIA [None]
  - INSOMNIA [None]
  - DRUG INEFFECTIVE [None]
  - BACK PAIN [None]
  - INJECTION SITE PAIN [None]
  - NASOPHARYNGITIS [None]
  - INCORRECT DOSE ADMINISTERED [None]
